FAERS Safety Report 4496803-8 (Version None)
Quarter: 2004Q4

REPORT INFORMATION
  Report Type: 
  Country: None (occurrence: None)
  Receive Date: 20041109
  Receipt Date: 20041029
  Transmission Date: 20050328
  Serious: Yes (Hospitalization)
  Sender: FDA-Public Use
  Company Number: DE-BRISTOL-MYERS SQUIBB COMPANY-12749701

PATIENT
  Age: 68 Year
  Sex: Female
  Weight: 84 kg

DRUGS (3)
  1. TAXOL [Suspect]
     Indication: OVARIAN CANCER
     Dosage: THERAPY DATES: 01-SEP-2004 THRU 13-OCT-2004
     Route: 042
     Dates: start: 20041013, end: 20031013
  2. CARBOPLATIN [Suspect]
     Indication: OVARIAN CANCER
     Dosage: THERAPY DATES: 01-SEP-2004 THRU 13-OCT-2004
     Route: 042
     Dates: start: 20041013, end: 20041013
  3. ERYPO [Suspect]
     Indication: ANAEMIA
     Dosage: THERAPY DATES: 01-SEP-2004 THRU 13-OCT-2004
     Route: 058
     Dates: start: 20041013, end: 20041013

REACTIONS (2)
  - DEEP VEIN THROMBOSIS [None]
  - PULMONARY EMBOLISM [None]
